FAERS Safety Report 5871675-5 (Version None)
Quarter: 2008Q3

REPORT INFORMATION
  Report Type: 
  Country: None (occurrence: None)
  Receive Date: 20080902
  Receipt Date: 20060119
  Transmission Date: 20090109
  Serious: Yes (Death)
  Sender: FDA-Public Use
  Company Number: 2008AL009343

PATIENT
  Age: 50 Year
  Sex: Male

DRUGS (7)
  1. DICLOFENAC SODIUM [Suspect]
     Indication: PAIN
     Dosage: 50 MG, Q8H,
     Dates: start: 20051219, end: 20051226
  2. KALETRA [Concomitant]
  3. VIREAD [Concomitant]
  4. DIDANOSINE [Concomitant]
  5. ZIDOVUDINE [Concomitant]
  6. GABAPENTIN [Concomitant]
  7. MORPHINE [Concomitant]

REACTIONS (2)
  - LACTIC ACIDOSIS [None]
  - RENAL FAILURE ACUTE [None]
